FAERS Safety Report 15895192 (Version 1)
Quarter: 2019Q1

REPORT INFORMATION
  Report Type: Spontaneous
  Country: US (occurrence: US)
  Receive Date: 20190129
  Receipt Date: 20190129
  Transmission Date: 20190417
  Serious: Yes (Disabling)
  Sender: FDA-Public Use
  Company Number: None

PATIENT
  Age: 31 Year
  Sex: Male
  Weight: 56.25 kg

DRUGS (1)
  1. BEG SPRAY [EDETIC ACID\GENTAMICIN\MUPIROCIN] [Suspect]
     Active Substance: EDETIC ACID\GENTAMICIN\MUPIROCIN
     Indication: INFLAMMATION
     Dosage: ?          OTHER STRENGTH:N/A;QUANTITY:3 SPRAY(S);OTHER ROUTE:NASAL SPRAY (TOPICAL AND INHALATION)?

REACTIONS (7)
  - Chronic sinusitis [None]
  - Rash [None]
  - Sinusitis [None]
  - Throat irritation [None]
  - Ear infection [None]
  - Nasal discomfort [None]
  - Respiratory tract irritation [None]

NARRATIVE: CASE EVENT DATE: 20180501
